FAERS Safety Report 4653372-7 (Version None)
Quarter: 2005Q2

REPORT INFORMATION
  Report Type: 
  Country: None (occurrence: None)
  Receive Date: 20050503
  Receipt Date: 20050420
  Transmission Date: 20051028
  Serious: Yes (Life-Threatening)
  Sender: FDA-Public Use
  Company Number: 2005020817

PATIENT
  Age: 76 Year
  Sex: Female

DRUGS (4)
  1. ZOLOFT [Suspect]
     Indication: DEPRESSION
     Dates: start: 20050101
  2. CIPRALAN [Suspect]
     Indication: SUPRAVENTRICULAR EXTRASYSTOLES
     Dosage: 260 MG (130 MG, 2 IN 1 D), UNKNOWN
  3. BROMAZEPAM (BROMAZEPAM) [Concomitant]
  4. TIMOLOL MALEATE [Concomitant]

REACTIONS (7)
  - ATRIOVENTRICULAR BLOCK [None]
  - CARDIOGENIC SHOCK [None]
  - COMA [None]
  - DRUG INTERACTION [None]
  - ELECTROCARDIOGRAM QRS COMPLEX PROLONGED [None]
  - NODAL RHYTHM [None]
  - OVERDOSE [None]
